FAERS Safety Report 5958345-X (Version None)
Quarter: 2008Q4

REPORT INFORMATION
  Report Type: 
  Country: None (occurrence: None)
  Receive Date: 20081117
  Receipt Date: 20081110
  Transmission Date: 20090506
  Serious: Yes (Hospitalization)
  Sender: FDA-Public Use
  Company Number: 104440

PATIENT
  Age: 53 Year
  Sex: Female
  Weight: 90.7194 kg

DRUGS (2)
  1. NICOTINE [Suspect]
     Indication: SMOKING CESSATION THERAPY
     Dosage: 2MG/10-14 PIECES PER DAY/ORAL
     Route: 048
  2. UNIDENTIFIED MEDICATION FOR HYPERTENSION [Concomitant]

REACTIONS (1)
  - PANCREATITIS ACUTE [None]
